FAERS Safety Report 17788094 (Version 1)
Quarter: 2020Q2

REPORT INFORMATION
  Report Type: Spontaneous
  Country: US (occurrence: US)
  Receive Date: 20200515
  Receipt Date: 20200515
  Transmission Date: 20200714
  Serious: No
  Sender: FDA-Public Use
  Company Number: US-AMGEN-USASP2020075090

PATIENT
  Age: 63 Year
  Sex: Male

DRUGS (1)
  1. ENBREL [Suspect]
     Active Substance: ETANERCEPT
     Indication: RHEUMATOID ARTHRITIS
     Dosage: 50 MILLIGRAM, QWK EVERY THURDSAY
     Route: 065
     Dates: start: 2019

REACTIONS (4)
  - Ligament injury [Unknown]
  - Accidental exposure to product [Unknown]
  - Device malfunction [Unknown]
  - Fall [Unknown]

NARRATIVE: CASE EVENT DATE: 2020
